FAERS Safety Report 8347276-6 (Version None)
Quarter: 2012Q1

REPORT INFORMATION
  Report Type: 
  Country: None (occurrence: None)
  Receive Date: 20120315
  Receipt Date: 20110104
  Transmission Date: 20120608
  Serious: No
  Sender: FDA-Public Use
  Company Number: PHHY2011US00825

PATIENT

DRUGS (1)
  1. GILENYA [Suspect]
     Dosage: UNK

REACTIONS (2)
  - PERSONALITY CHANGE [None]
  - ABDOMINAL DISCOMFORT [None]
